FAERS Safety Report 13545353 (Version 1)
Quarter: 2017Q2

REPORT INFORMATION
  Report Type: Spontaneous
  Country: CA (occurrence: CA)
  Receive Date: 20170515
  Receipt Date: 20170515
  Transmission Date: 20170830
  Serious: Yes (Other)
  Sender: FDA-Public Use
  Company Number: CA-009507513-1705CAN004599

PATIENT
  Sex: Female

DRUGS (1)
  1. INTRON A [Suspect]
     Active Substance: INTERFERON ALFA-2B
     Dosage: 1 INJECTION PER WEEK
     Route: 065

REACTIONS (1)
  - Psychotic symptom [Unknown]
